FAERS Safety Report 10229212 (Version 1)
Quarter: 2014Q2

REPORT INFORMATION
  Report Type: Spontaneous
  Country: US (occurrence: US)
  Receive Date: 20140611
  Receipt Date: 20140611
  Transmission Date: 20141212
  Serious: Yes (Hospitalization)
  Sender: FDA-Public Use
  Company Number: US-ROCHE-1413086

PATIENT
  Age: 68 Year
  Sex: Female

DRUGS (5)
  1. RITUXAN [Suspect]
     Indication: RHEUMATOID ARTHRITIS
     Route: 065
     Dates: start: 20140429
  2. PRILOSEC [Concomitant]
     Indication: BARRETT^S OESOPHAGUS
     Dosage: OR NEXIUM
     Route: 065
  3. NEXIUM [Concomitant]
     Indication: BARRETT^S OESOPHAGUS
     Dosage: OR PROLISEC
     Route: 065
  4. PROPANOLOL [Concomitant]
     Indication: MIGRAINE
     Dosage: USALLY TAKES ONE AT NIGHT
     Route: 065
     Dates: start: 1991
  5. PREDNISONE [Concomitant]
     Indication: RHEUMATOID ARTHRITIS
     Dosage: CUT BACK AND THEN DISCONTINUED, IV IN HOSPITAL
     Route: 042
     Dates: end: 201405

REACTIONS (12)
  - Diverticulitis [Recovering/Resolving]
  - Diverticular perforation [Recovering/Resolving]
  - Pain [Recovering/Resolving]
  - Asthenia [Not Recovered/Not Resolved]
  - Insomnia [Unknown]
  - Cardiac failure congestive [Unknown]
  - Wheezing [Recovered/Resolved]
  - Paraesthesia oral [Unknown]
  - Chest X-ray abnormal [Unknown]
  - Blood pressure abnormal [Recovered/Resolved]
  - Therapeutic response decreased [Unknown]
  - Arthralgia [Not Recovered/Not Resolved]
